FAERS Safety Report 20441126 (Version 5)
Quarter: 2023Q1

REPORT INFORMATION
  Report Type: Report from Study
  Country: US (occurrence: US)
  Receive Date: 20220208
  Receipt Date: 20230109
  Transmission Date: 20230417
  Serious: No
  Sender: FDA-Public Use
  Company Number: US-NOVARTISTESTPH-NVSC2022US026592

PATIENT
  Age: 37 Year
  Sex: Female

DRUGS (1)
  1. GILENYA [Suspect]
     Active Substance: FINGOLIMOD HYDROCHLORIDE
     Indication: Multiple sclerosis
     Dosage: 0.5 MG (STOPPED THE MEDICATION FOR 2 WEEKS)
     Route: 048
     Dates: start: 20220204

REACTIONS (3)
  - Full blood count abnormal [Recovered/Resolved]
  - Atrioventricular block first degree [Unknown]
  - Fatigue [Unknown]

NARRATIVE: CASE EVENT DATE: 20220204
